FAERS Safety Report 10906498 (Version 1)
Quarter: 2015Q1

REPORT INFORMATION
  Report Type: Spontaneous
  Country: US (occurrence: US)
  Receive Date: 20150312
  Receipt Date: 20150312
  Transmission Date: 20150721
  Serious: Yes (Other)
  Sender: FDA-Public Use
  Company Number: US-UCBSA-2015001084

PATIENT
  Age: 9 Year
  Sex: Female

DRUGS (2)
  1. KEPPRA [Suspect]
     Active Substance: LEVETIRACETAM
     Indication: SEIZURE
     Dosage: 8 ML, 2X/DAY (BID)
  2. KEPPRA [Suspect]
     Active Substance: LEVETIRACETAM
     Indication: SEIZURE
     Dosage: 1000 MG, 2X/DAY (BID)
     Dates: start: 201411

REACTIONS (8)
  - Depressed mood [Unknown]
  - Mood swings [Unknown]
  - Seizure [Unknown]
  - Crying [Unknown]
  - Aggression [Unknown]
  - Fatigue [Unknown]
  - Personality change [Unknown]
  - Gastrointestinal disorder [Unknown]
